FAERS Safety Report 13609058 (Version 1)
Quarter: 2017Q2

REPORT INFORMATION
  Report Type: Spontaneous
  Country: US (occurrence: US)
  Receive Date: 20170602
  Receipt Date: 20170602
  Transmission Date: 20170830
  Serious: Yes (Hospitalization, Other)
  Sender: FDA-Public Use
  Company Number: US-SA-2017SA044027

PATIENT
  Age: 30 Year
  Sex: Male

DRUGS (10)
  1. LEMTRADA [Suspect]
     Active Substance: ALEMTUZUMAB
     Indication: MULTIPLE SCLEROSIS
     Route: 041
     Dates: start: 20170227, end: 20170303
  2. ACLOVIR [Concomitant]
     Dates: start: 20170224, end: 20170227
  3. PREDNISONE. [Suspect]
     Active Substance: PREDNISONE
     Route: 048
  4. LOVENOX [Concomitant]
     Active Substance: ENOXAPARIN SODIUM
     Indication: THROMBOSIS PROPHYLAXIS
  5. LYRICA [Concomitant]
     Active Substance: PREGABALIN
     Indication: PAIN
     Route: 048
     Dates: start: 20161228
  6. PREDNISONE. [Concomitant]
     Active Substance: PREDNISONE
     Route: 048
  7. AMPYRA [Concomitant]
     Active Substance: DALFAMPRIDINE
     Indication: GAIT DISTURBANCE
     Dates: start: 20160919
  8. ZYRTEC [Concomitant]
     Active Substance: CETIRIZINE HYDROCHLORIDE
     Dates: start: 20170224, end: 20170227
  9. RESTORIL [Concomitant]
     Active Substance: TEMAZEPAM
     Dates: start: 20161017
  10. PROTONIX [Concomitant]
     Active Substance: PANTOPRAZOLE SODIUM
     Indication: PROPHYLAXIS

REACTIONS (31)
  - Agitation [Recovered/Resolved]
  - Tremor [Recovered/Resolved]
  - Haematocrit increased [Unknown]
  - Tachycardia [Unknown]
  - Delirium [Unknown]
  - Muscular weakness [Unknown]
  - Blood glucose increased [Unknown]
  - Haemoglobin increased [Unknown]
  - Lymphocyte count decreased [Unknown]
  - Acute psychosis [Recovered/Resolved]
  - Blood cholesterol increased [Unknown]
  - White blood cell count increased [Unknown]
  - Lymphocyte percentage decreased [Unknown]
  - Aggression [Recovered/Resolved]
  - Posture abnormal [Recovered/Resolved]
  - Motor dysfunction [Recovered/Resolved]
  - Speech disorder [Recovered/Resolved]
  - Disorientation [Recovered/Resolved]
  - Low density lipoprotein increased [Unknown]
  - Neutrophil percentage increased [Unknown]
  - Neutrophil count increased [Unknown]
  - Monocyte percentage decreased [Unknown]
  - Hallucination [Recovered/Resolved]
  - Confusional state [Recovered/Resolved]
  - Paranoia [Recovered/Resolved]
  - Gait disturbance [Unknown]
  - Mental status changes [Recovered/Resolved]
  - Multiple sclerosis relapse [Unknown]
  - Musculoskeletal disorder [Recovered/Resolved]
  - High density lipoprotein decreased [Unknown]
  - Blood lactate dehydrogenase increased [Unknown]

NARRATIVE: CASE EVENT DATE: 2017
